FAERS Safety Report 7544380-7 (Version None)
Quarter: 2011Q2

REPORT INFORMATION
  Report Type: 
  Country: None (occurrence: None)
  Receive Date: 20110613
  Receipt Date: 20080703
  Transmission Date: 20111010
  Serious: Yes (Hospitalization, Other)
  Sender: FDA-Public Use
  Company Number: PHHO2008AU08310

PATIENT

DRUGS (14)
  1. PERINDOPRIL ERBUMINE [Concomitant]
     Dosage: UNK
  2. LEUPROLIDE ACETATE [Suspect]
     Dosage: 22.5 MG, UNK
     Dates: start: 20050512
  3. CORTATE [Concomitant]
  4. KETOCONAZOLE [Concomitant]
  5. ASPIRIN [Concomitant]
     Dosage: UNK
  6. NEXIUM [Concomitant]
  7. LIPITOR [Concomitant]
  8. PERINDOPRIL ERBUMINE [Concomitant]
  9. NORVASC [Concomitant]
  10. METOPROLOL SUCCINATE [Concomitant]
     Dosage: UNK
  11. CLOPIDOGREL [Concomitant]
  12. CARTIA XT [Concomitant]
  13. AMLODIPINE [Concomitant]
     Dosage: UNK
  14. ZOLEDRONIC ACID [Suspect]
     Indication: METASTASES TO BONE
     Dosage: 4 MG, Q3MO
     Route: 042
     Dates: start: 20050517

REACTIONS (7)
  - MYOCARDIAL ISCHAEMIA [None]
  - ARTERIOSCLEROSIS CORONARY ARTERY [None]
  - ACUTE CORONARY SYNDROME [None]
  - CORONARY ARTERY STENOSIS [None]
  - ACUTE MYOCARDIAL INFARCTION [None]
  - RESPIRATORY TRACT INFECTION [None]
  - TROPONIN I INCREASED [None]
